FAERS Safety Report 18943171 (Version 2)
Quarter: 2021Q1

REPORT INFORMATION
  Report Type: Spontaneous
  Country: FR (occurrence: FR)
  Receive Date: 20210226
  Receipt Date: 20210305
  Transmission Date: 20210420
  Serious: Yes (Other)
  Sender: FDA-Public Use
  Company Number: FR-AUROBINDO-AUR-APL-2021-007611

PATIENT
  Age: 75 Year
  Sex: Female

DRUGS (4)
  1. SERTRALINE ARROW [Suspect]
     Active Substance: SERTRALINE HYDROCHLORIDE
     Indication: AUTOIMMUNE THYROIDITIS
     Dosage: UNK
     Route: 065
  2. SERTRALINE CAPSULE [Suspect]
     Active Substance: SERTRALINE HYDROCHLORIDE
     Indication: DEPRESSION
     Dosage: 50 MILLIGRAM, ONCE A DAY
     Route: 048
  3. SERTRALINE ARROW [Suspect]
     Active Substance: SERTRALINE HYDROCHLORIDE
     Indication: DEPRESSION
  4. SERTRALINE CAPSULE [Suspect]
     Active Substance: SERTRALINE HYDROCHLORIDE
     Indication: AUTOIMMUNE THYROIDITIS

REACTIONS (1)
  - Vision blurred [Not Recovered/Not Resolved]
